FAERS Safety Report 6235387-0 (Version None)
Quarter: 2009Q2

REPORT INFORMATION
  Report Type: 
  Country: None (occurrence: None)
  Receive Date: 20090618
  Receipt Date: 20080915
  Transmission Date: 20091009
  Serious: No
  Sender: FDA-Public Use
  Company Number: US-ASTRAZENECA-2008UW19101

PATIENT
  Age: 75 Year
  Sex: Male

DRUGS (4)
  1. ENTOCORT EC [Suspect]
     Indication: COLITIS MICROSCOPIC
     Dosage: 9MG DAILY, TAPERED BY ALTERNATE DAY EXCLUSIONS TO ZERO
     Route: 048
     Dates: start: 20071001, end: 20080101
  2. ENTOCORT EC [Suspect]
     Dosage: 3MG DAILY ALTERNATE DAY TAPER
     Route: 048
     Dates: start: 20080101, end: 20080301
  3. ENTOCORT EC [Suspect]
     Dosage: 3MG DAILY
     Route: 048
     Dates: start: 20080301, end: 20080801
  4. ENTOCORT EC [Suspect]
     Dosage: 3MG DAILY TAPERED DOSE
     Route: 048
     Dates: start: 20080801, end: 20080901

REACTIONS (4)
  - APATHY [None]
  - ASTHENIA [None]
  - GLUCOCORTICOIDS DECREASED [None]
  - MALAISE [None]
